FAERS Safety Report 7791934-9 (Version None)
Quarter: 2011Q3

REPORT INFORMATION
  Report Type: 
  Country: None (occurrence: None)
  Receive Date: 20110930
  Receipt Date: 20110930
  Transmission Date: 20111222
  Serious: Yes (Hospitalization)
  Sender: FDA-Public Use
  Company Number: None

PATIENT
  Age: 63 Year
  Sex: Male
  Weight: 79.4 kg

DRUGS (2)
  1. MORPHINE [Suspect]
     Dosage: 15 MG PRN PO
     Route: 048
     Dates: start: 20110712, end: 20110718
  2. MORPHINE [Suspect]
     Indication: OESOPHAGEAL CARCINOMA
     Dosage: MG PO
     Route: 048
     Dates: start: 20110712, end: 20110718

REACTIONS (2)
  - CONFUSIONAL STATE [None]
  - UNRESPONSIVE TO STIMULI [None]
